FAERS Safety Report 17671580 (Version 1)
Quarter: 2020Q2

REPORT INFORMATION
  Report Type: Spontaneous
  Country: US (occurrence: US)
  Receive Date: 20200415
  Receipt Date: 20200415
  Transmission Date: 20200713
  Serious: Yes (Life-Threatening, Hospitalization, Other)
  Sender: FDA-Public Use
  Company Number: US-GLENMARK PHARMACEUTICALS-2020GMK047300

PATIENT
  Age: 85 Year
  Sex: Female

DRUGS (2)
  1. EPINEPHRINE. [Suspect]
     Active Substance: EPINEPHRINE
     Indication: CARDIAC ARREST
     Dosage: UNK
     Route: 042
  2. LIDOCAINE. [Suspect]
     Active Substance: LIDOCAINE
     Indication: ANAESTHESIA
     Dosage: UNK (50CC)
     Route: 058

REACTIONS (8)
  - Pulmonary oedema [Unknown]
  - Coronary artery disease [Recovering/Resolving]
  - Ventricular hypokinesia [Recovering/Resolving]
  - Acute respiratory distress syndrome [Unknown]
  - Cardiac arrest [Recovered/Resolved]
  - Local anaesthetic systemic toxicity [Unknown]
  - Left ventricular dysfunction [Recovering/Resolving]
  - Stress cardiomyopathy [Recovering/Resolving]
